FAERS Safety Report 6654071-2 (Version None)
Quarter: 2010Q1

REPORT INFORMATION
  Report Type: 
  Country: None (occurrence: None)
  Receive Date: 20100326
  Receipt Date: 20100316
  Transmission Date: 20100710
  Serious: Yes (Other)
  Sender: FDA-Public Use
  Company Number: PHHY2010CA17089

PATIENT
  Sex: Female
  Weight: 74 kg

DRUGS (6)
  1. ACLASTA [Suspect]
     Indication: OSTEOPOROSIS
     Dosage: 5 MG / 100 ML
     Route: 042
     Dates: start: 20100212, end: 20100212
  2. RAMIPRIL [Concomitant]
     Route: 048
  3. ELTROXIN [Concomitant]
     Route: 048
  4. CALCIUM [Concomitant]
     Route: 048
  5. VITAMIN D [Concomitant]
     Route: 048
  6. GLUCOSAMINE [Concomitant]
     Route: 048

REACTIONS (5)
  - JOINT SWELLING [None]
  - MUSCULOSKELETAL DISCOMFORT [None]
  - MUSCULOSKELETAL STIFFNESS [None]
  - MYALGIA [None]
  - SKIN DISORDER [None]
